FAERS Safety Report 9849268 (Version 1)
Quarter: 2014Q1

REPORT INFORMATION
  Report Type: Spontaneous
  Country: US (occurrence: None)
  Receive Date: 20140124
  Receipt Date: 20140124
  Transmission Date: 20141002
  Serious: Yes (Disabling)
  Sender: FDA-Public Use
  Company Number: None

PATIENT
  Age: 70 Year
  Sex: Female
  Weight: 74.84 kg

DRUGS (8)
  1. ENBREL [Suspect]
     Indication: RHEUMATOID ARTHRITIS
     Dates: start: 20000110
  2. PLAQUANIL [Concomitant]
  3. PREDNISONE [Concomitant]
  4. METHOTREXATE [Concomitant]
  5. ENBREL [Concomitant]
  6. COQ10 [Concomitant]
  7. OMEGA 3 [Concomitant]
  8. MULTIVITAMIN [Concomitant]

REACTIONS (3)
  - Tremor [None]
  - Motor dysfunction [None]
  - Insomnia [None]
